FAERS Safety Report 13101242 (Version 1)
Quarter: 2017Q1

REPORT INFORMATION
  Report Type: Spontaneous
  Country: IT (occurrence: IT)
  Receive Date: 20170110
  Receipt Date: 20170110
  Transmission Date: 20170428
  Serious: Yes (Hospitalization)
  Sender: FDA-Public Use
  Company Number: IT-TEVA-726353ACC

PATIENT
  Age: 67 Year
  Sex: Female

DRUGS (1)
  1. QUETIAPINA [Suspect]
     Active Substance: QUETIAPINE

REACTIONS (3)
  - Depressed level of consciousness [Recovering/Resolving]
  - Self-medication [Unknown]
  - Product use issue [Unknown]
